FAERS Safety Report 7984304-1 (Version None)
Quarter: 2011Q4

REPORT INFORMATION
  Report Type: 
  Country: None (occurrence: None)
  Receive Date: 20111214
  Receipt Date: 20111130
  Transmission Date: 20120403
  Serious: Yes (Other)
  Sender: FDA-Public Use
  Company Number: AXC-2011-000513

PATIENT
  Age: 67 Year
  Sex: Female

DRUGS (1)
  1. MESALAMINE [Suspect]
     Indication: CROHN'S DISEASE

REACTIONS (2)
  - PANCREATITIS CHRONIC [None]
  - NEPHROLITHIASIS [None]
